FAERS Safety Report 9476608 (Version 1)
Quarter: 2013Q3

REPORT INFORMATION
  Report Type: Spontaneous
  Country: US (occurrence: None)
  Receive Date: 20130823
  Receipt Date: 20130823
  Transmission Date: 20140515
  Serious: Yes (Disabling)
  Sender: FDA-Public Use
  Company Number: None

PATIENT
  Age: 47 Year
  Sex: Female
  Weight: 61.69 kg

DRUGS (1)
  1. LUNESTA [Suspect]
     Indication: INSOMNIA
     Route: 048
     Dates: start: 20121030, end: 20130412

REACTIONS (12)
  - Fatigue [None]
  - Irritability [None]
  - Sinus headache [None]
  - Dependence [None]
  - Drug withdrawal syndrome [None]
  - Chills [None]
  - Insomnia [None]
  - Diarrhoea [None]
  - Tremor [None]
  - Headache [None]
  - Impaired work ability [None]
  - Impaired driving ability [None]
